FAERS Safety Report 9239124 (Version 2)
Quarter: 2013Q2

REPORT INFORMATION
  Report Type: Spontaneous
  Country: US (occurrence: US)
  Receive Date: 20130418
  Receipt Date: 20130528
  Transmission Date: 20140414
  Serious: Yes (Hospitalization, Other)
  Sender: FDA-Public Use
  Company Number: US-SANOFI-AVENTIS-2013SA038843

PATIENT
  Age: 64 Year
  Sex: Female

DRUGS (1)
  1. AUBAGIO [Suspect]
     Indication: MULTIPLE SCLEROSIS
     Route: 048

REACTIONS (5)
  - Angina pectoris [Not Recovered/Not Resolved]
  - Loss of consciousness [Unknown]
  - Road traffic accident [Unknown]
  - Cardiac disorder [Not Recovered/Not Resolved]
  - Drug dose omission [Unknown]
